FAERS Safety Report 8073161-3 (Version None)
Quarter: 2012Q1

REPORT INFORMATION
  Report Type: 
  Country: None (occurrence: None)
  Receive Date: 20120126
  Receipt Date: 20120113
  Transmission Date: 20120608
  Serious: Yes (Other)
  Sender: FDA-Public Use
  Company Number: US-ELI_LILLY_AND_COMPANY-US201112005712

PATIENT
  Sex: Female

DRUGS (2)
  1. FORTEO [Suspect]
     Dosage: UNK
     Dates: start: 20100601, end: 20101201
  2. FORTEO [Suspect]
     Dosage: UNK
     Dates: start: 20111201

REACTIONS (1)
  - ARTHRITIS BACTERIAL [None]
